FAERS Safety Report 6745184-5 (Version None)
Quarter: 2010Q2

REPORT INFORMATION
  Report Type: 
  Country: None (occurrence: None)
  Receive Date: 20100526
  Receipt Date: 20100519
  Transmission Date: 20101027
  Serious: Yes (Hospitalization, Other)
  Sender: FDA-Public Use
  Company Number: 20108663

PATIENT
  Age: 28 Year
  Sex: Male

DRUGS (1)
  1. LIORESAL [Suspect]
     Indication: MUSCLE SPASTICITY
     Dosage: 900.7 MCG, DAILY,  INTRATHECAL
     Route: 037

REACTIONS (7)
  - CATHETER SITE ERYTHEMA [None]
  - CONVULSION [None]
  - DEVICE RELATED INFECTION [None]
  - DRUG WITHDRAWAL SYNDROME [None]
  - ERYTHEMA [None]
  - HYPERHIDROSIS [None]
  - MUSCLE SPASMS [None]
